FAERS Safety Report 9281250 (Version 1)
Quarter: 2013Q2

REPORT INFORMATION
  Report Type: Spontaneous
  Country: US (occurrence: US)
  Receive Date: 20130509
  Receipt Date: 20130509
  Transmission Date: 20140414
  Serious: No
  Sender: FDA-Public Use
  Company Number: US-BAYER-2013-057529

PATIENT
  Age: 87 Year
  Sex: Female
  Weight: 54.42 kg

DRUGS (2)
  1. ALEVE LIQUID GELS [Suspect]
     Indication: ARTHRITIS
     Dosage: 1 DF, ONCE
     Route: 048
     Dates: start: 20130430, end: 20130430
  2. ALEVE CAPLET [Suspect]
     Indication: ARTHRITIS

REACTIONS (4)
  - Foreign body [Recovered/Resolved]
  - Hyperchlorhydria [None]
  - Drug ineffective [None]
  - Incorrect drug administration duration [None]
